FAERS Safety Report 6188989-4 (Version None)
Quarter: 2009Q2

REPORT INFORMATION
  Report Type: 
  Country: None (occurrence: None)
  Receive Date: 20090513
  Receipt Date: 20090507
  Transmission Date: 20091009
  Serious: Yes (Other)
  Sender: FDA-Public Use
  Company Number: US-MEDIMMUNE-MEDI-0008361

PATIENT
  Age: 5 Month
  Sex: Female

DRUGS (2)
  1. SYNAGIS [Suspect]
     Dosage: UNKNOWN
     Dates: start: 20090101, end: 20090430
  2. SYNAGIS [Suspect]
     Dosage: UNKNOWN
     Dates: start: 20090101

REACTIONS (1)
  - CONVULSION [None]
